FAERS Safety Report 10094309 (Version 2)
Quarter: 2014Q2

REPORT INFORMATION
  Report Type: Spontaneous
  Country: IE (occurrence: IE)
  Receive Date: 20140422
  Receipt Date: 20140612
  Transmission Date: 20141212
  Serious: Yes (Death, Other)
  Sender: FDA-Public Use
  Company Number: IE-AMGEN-IRLSP2014027769

PATIENT
  Age: 76 Year
  Sex: Female

DRUGS (14)
  1. PROLIA [Suspect]
     Indication: OSTEOPOROSIS
     Dosage: 60 MG, Q6MO
     Route: 058
     Dates: start: 20110418, end: 20131019
  2. BURINEX [Concomitant]
     Dosage: 1 MG, QD
  3. CALCICHEW D3 [Concomitant]
     Dosage: 500 MG/400 IU
  4. CANESTEN [Concomitant]
  5. ENSURE PLUS [Concomitant]
     Dosage: UNK UNK, BID
  6. EPILIM CHRONO                      /00228502/ [Concomitant]
     Dosage: 500 MG, QD
  7. MONTELUKAST [Concomitant]
     Dosage: 10 MG, QD
  8. MOVICOL                            /01625101/ [Concomitant]
     Dosage: 1 DF, QD
  9. NEURONTIN [Concomitant]
     Dosage: 100 MG, TID
  10. LAXOSE [Concomitant]
     Dosage: UNK MG, UNK
  11. PARACETAMOL [Concomitant]
     Indication: PAIN
     Dosage: 500 MG, UNK
  12. QUININE SULPHATE [Concomitant]
     Dosage: 300 MG, QD
  13. WARFARIN [Concomitant]
     Dosage: 1 MG, AS NECESSARY
  14. ZOTON [Concomitant]
     Dosage: 30 MG, QD

REACTIONS (1)
  - Motor neurone disease [Fatal]
